FAERS Safety Report 5930364-9 (Version None)
Quarter: 2008Q4

REPORT INFORMATION
  Report Type: 
  Country: None (occurrence: None)
  Receive Date: 20081023
  Receipt Date: 20081008
  Transmission Date: 20090506
  Serious: Yes (Other)
  Sender: FDA-Public Use
  Company Number: 2008S1018283

PATIENT
  Age: 68 Year
  Sex: Male

DRUGS (4)
  1. FAMOTIDINE [Suspect]
     Dosage: 40 MG;DAILY
  2. OXYCODONE HCL [Concomitant]
  3. DEXAMETHASONE [Concomitant]
  4. CARBAMAZEPINE [Concomitant]

REACTIONS (6)
  - ANOREXIA [None]
  - CONFUSIONAL STATE [None]
  - DEHYDRATION [None]
  - DISORIENTATION [None]
  - HALLUCINATION, VISUAL [None]
  - MALIGNANT NEOPLASM PROGRESSION [None]
